FAERS Safety Report 20750128 (Version 1)
Quarter: 2022Q2

REPORT INFORMATION
  Report Type: Spontaneous
  Country: US (occurrence: US)
  Receive Date: 20220426
  Receipt Date: 20220426
  Transmission Date: 20220721
  Serious: No
  Sender: FDA-Public Use
  Company Number: US-drreddys-SPO/USA/22/0148723

PATIENT
  Age: 68 Year

DRUGS (2)
  1. OMEPRAZOLE MAGNESIUM [Suspect]
     Active Substance: OMEPRAZOLE MAGNESIUM
     Indication: Product used for unknown indication
  2. PREMARIN [Concomitant]
     Active Substance: ESTROGENS, CONJUGATED
     Indication: Product used for unknown indication
     Dosage: APPLY NIGHTLY TO VAGINA FOR 1 WEEK THEN MONDAY/WEDNESDAY/FRIDAY?INSERT INTO VAGINA ONE TIME EACH DAY

REACTIONS (1)
  - Hypersensitivity [Unknown]
